FAERS Safety Report 16285354 (Version 1)
Quarter: 2019Q2

REPORT INFORMATION
  Report Type: Spontaneous
  Country: US (occurrence: US)
  Receive Date: 20190508
  Receipt Date: 20190508
  Transmission Date: 20190711
  Serious: No
  Sender: FDA-Public Use
  Company Number: US-BAYER-2019-085692

PATIENT
  Age: 73 Year
  Sex: Female
  Weight: 76 kg

DRUGS (5)
  1. LOVASTATIN. [Concomitant]
     Active Substance: LOVASTATIN
     Indication: BLOOD CHOLESTEROL INCREASED
  2. MIRALAX [Suspect]
     Active Substance: POLYETHYLENE GLYCOL 3350
     Indication: GASTROINTESTINAL DISORDER
     Dosage: 17.9 G, QD
     Route: 048
     Dates: start: 2019, end: 20190425
  3. FAMOTIDINE. [Concomitant]
     Active Substance: FAMOTIDINE
     Indication: DYSPNOEA
  4. INHALERIN [Concomitant]
     Dosage: UNK
     Dates: start: 20190425
  5. INHALERIN [Concomitant]
     Dosage: UNK
     Dates: start: 201812, end: 201904

REACTIONS (4)
  - Alopecia [None]
  - Condition aggravated [None]
  - Gastrointestinal pain [None]
  - Dry skin [None]

NARRATIVE: CASE EVENT DATE: 2019
